FAERS Safety Report 6205283-3 (Version None)
Quarter: 2009Q2

REPORT INFORMATION
  Report Type: 
  Country: None (occurrence: None)
  Receive Date: 20090526
  Receipt Date: 20090507
  Transmission Date: 20091009
  Serious: Yes (Other)
  Sender: FDA-Public Use
  Company Number: 2009S1004135

PATIENT
  Sex: Male

DRUGS (1)
  1. EZ PREP KIT [Suspect]
     Dosage: PO
     Route: 048
     Dates: start: 20080101

REACTIONS (1)
  - RENAL FAILURE CHRONIC [None]
